FAERS Safety Report 4576293-7 (Version None)
Quarter: 2005Q1

REPORT INFORMATION
  Report Type: 
  Country: None (occurrence: None)
  Receive Date: 20050207
  Receipt Date: 20050125
  Transmission Date: 20050727
  Serious: Yes (Other)
  Sender: FDA-Public Use
  Company Number: 2005020337

PATIENT
  Age: 63 Year
  Sex: Female
  Weight: 73 kg

DRUGS (6)
  1. DOXAZOSIN MESYLATE [Suspect]
     Indication: HYPERTENSION
     Dosage: (4 MG) ORAL
     Route: 048
     Dates: start: 20041224, end: 20050107
  2. VALSARTAN (VALSARTAN) [Concomitant]
  3. LEVOTHYROXINE SODIUM [Concomitant]
  4. PRAVASTATIN [Concomitant]
  5. RISPERDAL [Concomitant]
  6. LOPERAMIDE HCL [Concomitant]

REACTIONS (6)
  - ARRHYTHMIA [None]
  - ATRIAL FLUTTER [None]
  - BUNDLE BRANCH BLOCK [None]
  - DIZZINESS [None]
  - PALPITATIONS [None]
  - VENTRICULAR EXTRASYSTOLES [None]
